FAERS Safety Report 8294759-3 (Version None)
Quarter: 2012Q2

REPORT INFORMATION
  Report Type: 
  Country: None (occurrence: None)
  Receive Date: 20120418
  Receipt Date: 20120409
  Transmission Date: 20120825
  Serious: Yes (Other)
  Sender: FDA-Public Use
  Company Number: JP-SANOFI-AVENTIS-2012SA022959

PATIENT
  Age: 60 Year
  Sex: Female

DRUGS (4)
  1. ZOLPIDEM [Suspect]
     Route: 048
  2. CONIEL [Concomitant]
     Route: 048
  3. LITHIUM CARBONATE [Concomitant]
     Route: 048
  4. GARENOXACIN MESYLATE [Suspect]
     Route: 048
     Dates: start: 20120125, end: 20120127

REACTIONS (1)
  - MOUTH ULCERATION [None]
